FAERS Safety Report 12551897 (Version 1)
Quarter: 2016Q3

REPORT INFORMATION
  Report Type: Spontaneous
  Country: NG (occurrence: None)
  Receive Date: 20160712
  Receipt Date: 20160712
  Transmission Date: 20161109
  Serious: Yes (Other)
  Sender: FDA-Public Use
  Company Number: None

PATIENT
  Age: 25 Year
  Sex: Male
  Weight: 82 kg

DRUGS (1)
  1. CLIN-CAP [Suspect]
     Active Substance: CLINDAMYCIN PHOSPHATE
     Indication: ACNE
     Dosage: TWICE A DAY  APPLIED TO A SURFACE, USUALLY THE SKIN
     Route: 061
     Dates: start: 20160708

REACTIONS (2)
  - Furuncle [None]
  - Swelling face [None]

NARRATIVE: CASE EVENT DATE: 20160708
